FAERS Safety Report 9329066 (Version 1)
Quarter: 2013Q2

REPORT INFORMATION
  Report Type: Spontaneous
  Country: US (occurrence: US)
  Receive Date: 20130604
  Receipt Date: 20130604
  Transmission Date: 20140414
  Serious: No
  Sender: FDA-Public Use
  Company Number: US-SANOFI-AVENTIS-2013SA021718

PATIENT
  Age: 44 Year
  Sex: Female
  Weight: 45 kg

DRUGS (4)
  1. LANTUS SOLOSTAR [Suspect]
     Indication: DIABETES MELLITUS
     Dosage: DOSE:20 UNIT(S)
     Dates: start: 20120902, end: 20121220
  2. SOLOSTAR [Suspect]
     Indication: DIABETES MELLITUS
     Dates: start: 20120902, end: 20121220
  3. LANTUS [Suspect]
  4. HUMALOG [Concomitant]
     Indication: DIABETES MELLITUS
     Dosage: DOSE:15 UNIT(S)
     Dates: start: 1991

REACTIONS (4)
  - Palpitations [Recovered/Resolved]
  - Dyspnoea [Recovered/Resolved]
  - Injection site rash [Recovered/Resolved]
  - Injection site mass [Recovered/Resolved]
